FAERS Safety Report 25046479 (Version 5)
Quarter: 2025Q3

REPORT INFORMATION
  Report Type: Report from Study
  Country: US (occurrence: US)
  Receive Date: 20250306
  Receipt Date: 20250718
  Transmission Date: 20251020
  Serious: Yes (Congenital Anomaly)
  Sender: GILEAD
  Company Number: US-GILEAD-2025-0705232

PATIENT
  Age: 0 Year
  Sex: Male
  Weight: 3.02 kg

DRUGS (8)
  1. BICTEGRAVIR\EMTRICITABINE\TENOFOVIR ALAFENAMIDE [Suspect]
     Active Substance: BICTEGRAVIR\EMTRICITABINE\TENOFOVIR ALAFENAMIDE
     Indication: HIV infection
     Dosage: 1 DOSAGE FORM, QD
     Route: 064
  2. RETROVIR [Suspect]
     Active Substance: ZIDOVUDINE
     Indication: HIV infection
     Route: 064
     Dates: start: 20240904, end: 20240905
  3. RETROVIR [Suspect]
     Active Substance: ZIDOVUDINE
     Route: 064
     Dates: start: 20240904, end: 20240905
  4. METRONIDAZOLE [Concomitant]
     Active Substance: METRONIDAZOLE
  5. MORPHINE [Concomitant]
     Active Substance: MORPHINE
  6. ZOFRAN [Concomitant]
     Active Substance: ONDANSETRON HYDROCHLORIDE
  7. REGLAN [Concomitant]
     Active Substance: METOCLOPRAMIDE HYDROCHLORIDE
  8. BENADRYL [Concomitant]
     Active Substance: DIPHENHYDRAMINE HYDROCHLORIDE

REACTIONS (2)
  - Polydactyly [Recovered/Resolved]
  - Foetal exposure during pregnancy [Recovered/Resolved]

NARRATIVE: CASE EVENT DATE: 20231224
